FAERS Safety Report 4452567-5 (Version None)
Quarter: 2004Q3

REPORT INFORMATION
  Report Type: 
  Country: None (occurrence: None)
  Receive Date: 20040916
  Receipt Date: 20040907
  Transmission Date: 20050211
  Serious: Yes (Death, Hospitalization)
  Sender: FDA-Public Use
  Company Number: 2004232177JP

PATIENT
  Age: 58 Year
  Sex: Male

DRUGS (13)
  1. CAMPTOSAR [Suspect]
     Indication: NON-SMALL CELL LUNG CANCER STAGE IIIB
     Dosage: 90 MG, CYCLIC, IV DRIP
     Route: 041
     Dates: start: 19981019, end: 19981123
  2. CISPLATIN [Suspect]
     Indication: NON-SMALL CELL LUNG CANCER STAGE IIIB
     Dosage: 120 MG, CYCLIC, IV DRIP
     Route: 041
     Dates: start: 19981019, end: 19981116
  3. CLINORIL [Concomitant]
  4. PREDONINE [Concomitant]
  5. NEUTROGIN [Concomitant]
  6. LOPEMIN [Concomitant]
  7. METHYLPREDNISOLONE [Concomitant]
  8. ZOVIRAX [Concomitant]
  9. FIRSTCIN [Concomitant]
  10. CLINDAMYCIN HCL [Concomitant]
  11. MINOMYCIN [Concomitant]
  12. GANCICLOVIR SODIUM [Concomitant]
  13. BIKLIN (AMIKACIN SULFATE) [Concomitant]

REACTIONS (13)
  - CONDITION AGGRAVATED [None]
  - DIARRHOEA [None]
  - DISEASE RECURRENCE [None]
  - HAEMOGLOBIN DECREASED [None]
  - IMMUNODEFICIENCY [None]
  - INTERSTITIAL LUNG DISEASE [None]
  - LEUKOPENIA [None]
  - NAUSEA [None]
  - NEUTROPENIA [None]
  - RADIATION PNEUMONITIS [None]
  - THROMBOCYTOPENIA [None]
  - VARICELLA [None]
  - VOMITING [None]
